FAERS Safety Report 10012438 (Version 1)
Quarter: 2014Q1

REPORT INFORMATION
  Report Type: Report from Study
  Country: BR (occurrence: BR)
  Receive Date: 20140314
  Receipt Date: 20140314
  Transmission Date: 20141002
  Serious: Yes (Other)
  Sender: FDA-Public Use
  Company Number: PHHY2014BR030432

PATIENT
  Age: 30 Year
  Sex: Female
  Weight: 80 kg

DRUGS (5)
  1. FORASEQ [Suspect]
     Indication: ASTHMA
     Dosage: 1 DF (12UG FORM AND 400UG BUDE), QD (IN THE MORNING)
     Route: 055
  2. OMEPRAZOLE [Concomitant]
     Indication: GASTRIC DISORDER
     Dosage: 20 MG, UNK
     Dates: start: 201306
  3. LASIX [Concomitant]
     Indication: DIURETIC THERAPY
     Dosage: 40 MG, UNK
     Dates: start: 201306
  4. VONDE [Concomitant]
     Indication: NAUSEA
     Dosage: 8 MG, UNK
     Dates: start: 201306
  5. TAMOXIFEN CITRATE [Concomitant]
     Indication: TUMOUR COMPRESSION
     Dosage: 20 MG 1 MONTH AGO

REACTIONS (3)
  - Breast cancer [Recovering/Resolving]
  - Hepatic neoplasm [Recovering/Resolving]
  - Metastases to liver [Unknown]
